FAERS Safety Report 5049540-5 (Version None)
Quarter: 2006Q3

REPORT INFORMATION
  Report Type: 
  Country: None (occurrence: None)
  Receive Date: 20060712
  Receipt Date: 20060628
  Transmission Date: 20061208
  Serious: Yes (Death, Life-Threatening, Hospitalization)
  Sender: FDA-Public Use
  Company Number: JP-NOVOPROD-254656

PATIENT
  Age: 22 Year
  Sex: Female
  Weight: 42 kg

DRUGS (1)
  1. PENFILL R CHU [Suspect]
     Indication: DIABETES MELLITUS INSULIN-DEPENDENT
     Dosage: 27 IU, QD
     Route: 058
     Dates: start: 20020101, end: 20050901

REACTIONS (3)
  - BACTERIAL INFECTION [None]
  - CONVULSION [None]
  - MULTI-ORGAN FAILURE [None]
